FAERS Safety Report 8425191-7 (Version None)
Quarter: 2012Q2

REPORT INFORMATION
  Report Type: 
  Country: None (occurrence: None)
  Receive Date: 20120611
  Receipt Date: 20120528
  Transmission Date: 20120825
  Serious: Yes (Hospitalization)
  Sender: FDA-Public Use
  Company Number: US-ACCORD-013671

PATIENT
  Age: 80 Year
  Sex: Male

DRUGS (3)
  1. MYCOPHENOLATE MOFETIL [Suspect]
     Indication: MYASTHENIA GRAVIS
  2. PYRIDOSTIGMINE BROMIDE [Concomitant]
     Indication: MYASTHENIA GRAVIS
  3. PREDNISONE TAB [Concomitant]
     Indication: MYASTHENIA GRAVIS

REACTIONS (2)
  - EPSTEIN-BARR VIRUS INFECTION [None]
  - OFF LABEL USE [None]
